FAERS Safety Report 10038361 (Version 1)
Quarter: 2014Q1

REPORT INFORMATION
  Report Type: Spontaneous
  Country: US (occurrence: US)
  Receive Date: 20140326
  Receipt Date: 20140326
  Transmission Date: 20141002
  Serious: No
  Sender: FDA-Public Use
  Company Number: US-PFIZER INC-2014085284

PATIENT
  Age: 85 Year
  Sex: Female
  Weight: 85.71 kg

DRUGS (8)
  1. XELJANZ [Suspect]
     Indication: RHEUMATOID ARTHRITIS
     Dosage: 5 MG, BID
     Route: 048
     Dates: start: 20131104
  2. PREDNISONE [Concomitant]
     Dosage: UNK
  3. TRAMADOL [Concomitant]
     Dosage: UNK
  4. IBUPROFEN [Concomitant]
     Dosage: UNK
  5. FISH OIL [Concomitant]
     Dosage: UNK
  6. VERAPAMIL [Concomitant]
     Dosage: UNK
  7. CITRACAL [Concomitant]
     Dosage: UNK
  8. VIT D [Concomitant]
     Dosage: UNK

REACTIONS (2)
  - Constipation [Unknown]
  - Dry skin [Unknown]
